FAERS Safety Report 4336509-9 (Version None)
Quarter: 2004Q2

REPORT INFORMATION
  Report Type: 
  Country: None (occurrence: None)
  Receive Date: 20040412
  Receipt Date: 20040325
  Transmission Date: 20050107
  Serious: Yes (Other)
  Sender: FDA-Public Use
  Company Number: 200411087JP

PATIENT
  Age: 30 Year
  Sex: Female

DRUGS (5)
  1. FUROSEMIDE [Suspect]
     Indication: OLIGURIA
     Route: 041
  2. KCL TAB [Concomitant]
     Indication: HYPOKALAEMIA
  3. DIART [Concomitant]
     Indication: OLIGURIA
     Route: 048
  4. NU-LOTAN [Concomitant]
     Route: 048
  5. SPIRONOLACTONE [Concomitant]
     Route: 048

REACTIONS (6)
  - BLOOD ALDOSTERONE ABNORMAL [None]
  - BLOOD POTASSIUM INCREASED [None]
  - DRUG DEPENDENCE [None]
  - HYPOKALAEMIA [None]
  - PSEUDO-BARTTER SYNDROME [None]
  - PSYCHOSOMATIC DISEASE [None]
